FAERS Safety Report 13732365 (Version 1)
Quarter: 2017Q3

REPORT INFORMATION
  Report Type: Spontaneous
  Country: US (occurrence: US)
  Receive Date: 20170707
  Receipt Date: 20170707
  Transmission Date: 20171127
  Serious: No
  Sender: FDA-Public Use
  Company Number: US-SA-2017SA097496

PATIENT
  Age: 35 Year
  Sex: Female
  Weight: 60.78 kg

DRUGS (8)
  1. DUPIXENT [Suspect]
     Active Substance: DUPILUMAB
     Indication: ECZEMA
     Route: 030
     Dates: start: 20170525, end: 20170525
  2. DUPIXENT [Suspect]
     Active Substance: DUPILUMAB
     Indication: ECZEMA
     Route: 030
     Dates: start: 20170508, end: 20170508
  3. BENADRYL [Concomitant]
     Active Substance: DIPHENHYDRAMINE HYDROCHLORIDE
  4. DUPIXENT [Suspect]
     Active Substance: DUPILUMAB
     Indication: DERMATITIS ATOPIC
     Route: 030
     Dates: start: 20170525, end: 20170525
  5. BACLOFEN. [Concomitant]
     Active Substance: BACLOFEN
  6. PEPCID [Concomitant]
     Active Substance: FAMOTIDINE
  7. DUPIXENT [Suspect]
     Active Substance: DUPILUMAB
     Indication: DERMATITIS ATOPIC
     Route: 030
     Dates: start: 20170508, end: 20170508
  8. ALLEGRA [Concomitant]
     Active Substance: FEXOFENADINE HYDROCHLORIDE

REACTIONS (7)
  - Rash [Unknown]
  - Erythema [Recovered/Resolved]
  - Condition aggravated [Recovered/Resolved]
  - Diarrhoea [Unknown]
  - Anxiety [Recovered/Resolved]
  - Dyspnoea [Recovered/Resolved]
  - Pruritus [Recovered/Resolved]

NARRATIVE: CASE EVENT DATE: 20170508
